FAERS Safety Report 7167060-9 (Version None)
Quarter: 2010Q4

REPORT INFORMATION
  Report Type: 
  Country: None (occurrence: None)
  Receive Date: 20101213
  Receipt Date: 20101213
  Transmission Date: 20110411
  Serious: No
  Sender: FDA-Public Use
  Company Number: None

PATIENT
  Age: 39 Year
  Sex: Male
  Weight: 106.5953 kg

DRUGS (1)
  1. LIPITOR [Suspect]
     Indication: BLOOD CHOLESTEROL INCREASED
     Dosage: NOT SURE 1X PER DAY PO
     Route: 048
     Dates: start: 20000401, end: 20001223

REACTIONS (4)
  - ANHEDONIA [None]
  - FATIGUE [None]
  - MUSCLE ATROPHY [None]
  - PAIN [None]
